FAERS Safety Report 13354390 (Version 3)
Quarter: 2017Q2

REPORT INFORMATION
  Report Type: Spontaneous
  Country: AT (occurrence: AT)
  Receive Date: 20170321
  Receipt Date: 20170419
  Transmission Date: 20170830
  Serious: Yes (Hospitalization, Other)
  Sender: FDA-Public Use
  Company Number: PHHY2017AT041651

PATIENT
  Age: 82 Year
  Sex: Male

DRUGS (2)
  1. ENTRESTO [Suspect]
     Active Substance: SACUBITRIL\VALSARTAN
     Indication: PRODUCT USED FOR UNKNOWN INDICATION
     Dosage: (LOWEST DOSE)
     Route: 065
     Dates: start: 201603
  2. ENTRESTO [Suspect]
     Active Substance: SACUBITRIL\VALSARTAN
     Dosage: 0.5 DF (OF HIGHER DOSE)
     Route: 065
     Dates: end: 20170224

REACTIONS (4)
  - Cardiac failure [Unknown]
  - Renal failure [Unknown]
  - Wrong technique in product usage process [Unknown]
  - Pulmonary oedema [Unknown]
